FAERS Safety Report 5757702-4 (Version None)
Quarter: 2008Q2

REPORT INFORMATION
  Report Type: 
  Country: None (occurrence: None)
  Receive Date: 20080529
  Receipt Date: 20080521
  Transmission Date: 20081010
  Serious: Yes (Hospitalization)
  Sender: FDA-Public Use
  Company Number: 2008AL005590

PATIENT
  Age: 68 Year
  Sex: Male

DRUGS (2)
  1. DILTIAZEM HYDROCHLORIDE [Suspect]
     Indication: HYPERTENSION
     Dosage: X1; PO
     Route: 048
  2. AMOXICILLIN [Concomitant]

REACTIONS (1)
  - ANAPHYLACTIC SHOCK [None]
